FAERS Safety Report 14375884 (Version 1)
Quarter: 2018Q1

REPORT INFORMATION
  Report Type: Spontaneous
  Country: US (occurrence: US)
  Receive Date: 20180109
  Receipt Date: 20180109
  Transmission Date: 20180509
  Serious: Yes (Hospitalization)
  Sender: FDA-Public Use
  Company Number: None

PATIENT
  Age: 50 Year
  Sex: Female
  Weight: 83.6 kg

DRUGS (1)
  1. GADAVIST [Suspect]
     Active Substance: GADOBUTROL

REACTIONS (5)
  - Pruritus [None]
  - Erythema [None]
  - Throat tightness [None]
  - Documented hypersensitivity to administered product [None]
  - Rash [None]

NARRATIVE: CASE EVENT DATE: 20171216
